FAERS Safety Report 4816117-3 (Version None)
Quarter: 2005Q4

REPORT INFORMATION
  Report Type: 
  Country: None (occurrence: None)
  Receive Date: 20051026
  Receipt Date: 20051017
  Transmission Date: 20060501
  Serious: Yes (Other)
  Sender: FDA-Public Use
  Company Number: 200512254BWH

PATIENT

DRUGS (2)
  1. AVELOX [Suspect]
  2. COUMADIN [Suspect]

REACTIONS (1)
  - GASTROINTESTINAL HAEMORRHAGE [None]
